FAERS Safety Report 12685435 (Version 1)
Quarter: 2016Q3

REPORT INFORMATION
  Report Type: Spontaneous
  Country: FR (occurrence: FR)
  Receive Date: 20160825
  Receipt Date: 20160825
  Transmission Date: 20161109
  Serious: Yes (Hospitalization)
  Sender: FDA-Public Use
  Company Number: FR-PFIZER INC-2016389820

PATIENT
  Age: 58 Year
  Sex: Female

DRUGS (6)
  1. PROPRANOLOL [Suspect]
     Active Substance: PROPRANOLOL\PROPRANOLOL HYDROCHLORIDE
     Dosage: 20 MG, 2X/DAY
     Route: 048
  2. PROPRANOLOL [Suspect]
     Active Substance: PROPRANOLOL\PROPRANOLOL HYDROCHLORIDE
     Dosage: 180 MG, SINGLE
     Route: 048
     Dates: start: 20160715, end: 20160715
  3. XANAX [Suspect]
     Active Substance: ALPRAZOLAM
     Dosage: 0.25 MG, 1X/DAY
     Route: 048
  4. XANAX [Suspect]
     Active Substance: ALPRAZOLAM
     Dosage: 1 MG, SINGLE
     Route: 048
     Dates: start: 20160715, end: 20160715
  5. DONORMYL /00334102/ [Suspect]
     Active Substance: DOXYLAMINE SUCCINATE
     Dosage: 150 MG, SINGLE
     Route: 048
     Dates: start: 20160715, end: 20160715
  6. MELATONIN [Suspect]
     Active Substance: MELATONIN
     Dosage: 13 G, SINGLE
     Route: 048
     Dates: start: 20160715, end: 20160715

REACTIONS (2)
  - Sinus bradycardia [Unknown]
  - Hypotension [Unknown]

NARRATIVE: CASE EVENT DATE: 20160715
